FAERS Safety Report 11799628 (Version 4)
Quarter: 2016Q1

REPORT INFORMATION
  Report Type: Spontaneous
  Country: US (occurrence: US)
  Receive Date: 20151203
  Receipt Date: 20160105
  Transmission Date: 20160525
  Serious: Yes (Other)
  Sender: FDA-Public Use
  Company Number: US-GILEAD-2015-0184595

PATIENT
  Sex: Female

DRUGS (2)
  1. SOVALDI [Suspect]
     Active Substance: SOFOSBUVIR
     Indication: HEPATITIS C
     Dosage: UNK
     Route: 065
     Dates: start: 201508, end: 20151116
  2. RIBAVIRIN. [Concomitant]
     Active Substance: RIBAVIRIN

REACTIONS (12)
  - Hallucination [Unknown]
  - Headache [Unknown]
  - Feeding disorder [Not Recovered/Not Resolved]
  - Suicidal ideation [Unknown]
  - Palpitations [Unknown]
  - Chest pain [Unknown]
  - Constipation [Unknown]
  - Anxiety [Unknown]
  - Sensory disturbance [Unknown]
  - Feeling abnormal [Unknown]
  - Stress [Unknown]
  - Insomnia [Unknown]

NARRATIVE: CASE EVENT DATE: 201511
